FAERS Safety Report 9854055 (Version 3)
Quarter: 2014Q1

REPORT INFORMATION
  Report Type: Spontaneous
  Country: US (occurrence: US)
  Receive Date: 20140129
  Receipt Date: 20140206
  Transmission Date: 20141002
  Serious: Yes (Death, Hospitalization)
  Sender: FDA-Public Use
  Company Number: US-TMC-CABO-13002497

PATIENT
  Age: 81 Year
  Sex: Male
  Weight: 158 kg

DRUGS (6)
  1. COMETRIQ [Suspect]
     Indication: PROSTATE CANCER
     Dosage: 100 MG, QD
     Route: 048
     Dates: start: 20130314, end: 20130412
  2. COMETRIQ [Suspect]
     Dosage: 100 MG, QD
     Route: 048
     Dates: start: 2013, end: 2013
  3. PERCOCET [Concomitant]
  4. MORPHINE [Concomitant]
  5. METOPROLOL [Concomitant]
  6. LISINOPRIL [Concomitant]

REACTIONS (7)
  - Death [Fatal]
  - Fall [Unknown]
  - Pain [Unknown]
  - Fatigue [Unknown]
  - Dysphonia [Unknown]
  - Diarrhoea [Fatal]
  - Off label use [Unknown]
